FAERS Safety Report 25058804 (Version 1)
Quarter: 2025Q1

REPORT INFORMATION
  Report Type: Spontaneous
  Country: CH (occurrence: CH)
  Receive Date: 20250310
  Receipt Date: 20250310
  Transmission Date: 20250409
  Serious: Yes (Other)
  Sender: AMGEN
  Company Number: CH-AMGEN-CHESP2025042565

PATIENT
  Sex: Female

DRUGS (1)
  1. ADALIMUMAB [Suspect]
     Active Substance: ADALIMUMAB
     Indication: Product used for unknown indication
     Route: 065

REACTIONS (6)
  - Blindness [Unknown]
  - Abdominal pain upper [Unknown]
  - Constipation [Unknown]
  - Arthralgia [Unknown]
  - Depression [Unknown]
  - Headache [Unknown]
